FAERS Safety Report 4812619-4 (Version None)
Quarter: 2005Q4

REPORT INFORMATION
  Report Type: 
  Country: None (occurrence: None)
  Receive Date: 20051028
  Receipt Date: 20041102
  Transmission Date: 20060501
  Serious: No
  Sender: FDA-Public Use
  Company Number: US-GLAXOSMITHKLINE-A0532243A

PATIENT
  Sex: Female

DRUGS (9)
  1. ADVAIR DISKUS 100/50 [Suspect]
     Indication: DRUG USE FOR UNKNOWN INDICATION
     Route: 055
     Dates: start: 20040101
  2. PRILOSEC [Concomitant]
  3. SINGULAIR [Concomitant]
  4. DYAZIDE [Concomitant]
  5. CELEBREX [Concomitant]
  6. ANTIVERT [Concomitant]
  7. K-DUR 10 [Concomitant]
  8. ACTONEL [Concomitant]
  9. NIFEREX [Concomitant]

REACTIONS (2)
  - COUGH [None]
  - PHARMACEUTICAL PRODUCT COMPLAINT [None]
